FAERS Safety Report 9452370 (Version 2)
Quarter: 2013Q3

REPORT INFORMATION
  Report Type: Spontaneous
  Country: CH (occurrence: CH)
  Receive Date: 20130812
  Receipt Date: 20130820
  Transmission Date: 20140515
  Serious: Yes (Hospitalization, Other)
  Sender: FDA-Public Use
  Company Number: CH-JNJFOC-20130718894

PATIENT
  Age: 84 Year
  Sex: Male

DRUGS (3)
  1. ZYTIGA [Suspect]
     Indication: PROSTATE CANCER
     Dosage: 250MGX3
     Route: 048
     Dates: start: 20130729
  2. ZYTIGA [Suspect]
     Indication: PROSTATE CANCER
     Dosage: 250MGX4
     Route: 048
     Dates: start: 20130530, end: 20130716
  3. TOREM [Concomitant]
     Dosage: TOREM 5 MG 1X/I
     Route: 065

REACTIONS (2)
  - Liver function test abnormal [Recovered/Resolved]
  - Urosepsis [Unknown]
